FAERS Safety Report 14068964 (Version 2)
Quarter: 2017Q4

REPORT INFORMATION
  Report Type: Spontaneous
  Country: US (occurrence: US)
  Receive Date: 20171010
  Receipt Date: 20171031
  Transmission Date: 20180321
  Serious: Yes (Other)
  Sender: FDA-Public Use
  Company Number: US-ELI_LILLY_AND_COMPANY-US201709011243

PATIENT
  Age: 49 Year
  Sex: Female

DRUGS (9)
  1. HUMULIN R [Suspect]
     Active Substance: INSULIN HUMAN
     Dosage: 10 U, DAILY(NIGHT)
     Route: 058
  2. NOVOLIN [Suspect]
     Active Substance: INSULIN HUMAN
     Indication: PRODUCT USED FOR UNKNOWN INDICATION
     Dosage: UNK, UNKNOWN
     Route: 065
  3. LANTUS [Concomitant]
     Active Substance: INSULIN GLARGINE
     Indication: TYPE 1 DIABETES MELLITUS
  4. HUMULIN R [Suspect]
     Active Substance: INSULIN HUMAN
     Dosage: 4 U, BID(AT BREAKFAST AND NOON)
     Route: 058
  5. HUMULIN R [Suspect]
     Active Substance: INSULIN HUMAN
     Dosage: UNK, TID
     Route: 058
  6. HUMULIN R [Suspect]
     Active Substance: INSULIN HUMAN
     Dosage: 10 U, DAILY(NIGHT)
     Route: 058
  7. HUMULIN R [Suspect]
     Active Substance: INSULIN HUMAN
     Indication: TYPE 1 DIABETES MELLITUS
     Dosage: 4 U, BID(AT BREAKFAST AND NOON)
     Route: 058
  8. HUMULIN R [Suspect]
     Active Substance: INSULIN HUMAN
     Dosage: 10 U, DAILY(NIGHT)
     Route: 058
  9. HUMULIN R [Suspect]
     Active Substance: INSULIN HUMAN
     Dosage: 4 U, BID(AT BREAKFAST AND NOON)
     Route: 058

REACTIONS (12)
  - Uterine leiomyoma [Not Recovered/Not Resolved]
  - Blood glucose decreased [Unknown]
  - Visual impairment [Not Recovered/Not Resolved]
  - Drug dose omission [Recovering/Resolving]
  - Blood glucose increased [Not Recovered/Not Resolved]
  - Tachycardia [Not Recovered/Not Resolved]
  - Heart rate increased [Not Recovered/Not Resolved]
  - Drug dose omission [Recovering/Resolving]
  - Anaemia [Not Recovered/Not Resolved]
  - Incorrect drug administration duration [Recovering/Resolving]
  - Blood glucose decreased [Not Recovered/Not Resolved]
  - General physical health deterioration [Unknown]

NARRATIVE: CASE EVENT DATE: 201708
